FAERS Safety Report 19471100 (Version 1)
Quarter: 2021Q2

REPORT INFORMATION
  Report Type: Spontaneous
  Country: US (occurrence: US)
  Receive Date: 20210628
  Receipt Date: 20210628
  Transmission Date: 20210717
  Serious: Yes (Life-Threatening, Hospitalization, Disabling, Other)
  Sender: FDA-Public Use
  Company Number: None

PATIENT
  Age: 13 Year
  Sex: Female
  Weight: 33.75 kg

DRUGS (2)
  1. LEXAPRO [Concomitant]
     Active Substance: ESCITALOPRAM OXALATE
  2. VYVANSE [Suspect]
     Active Substance: LISDEXAMFETAMINE DIMESYLATE
     Indication: PRODUCT USED FOR UNKNOWN INDICATION
     Dosage: ?          QUANTITY:1 CAPSULE(S);OTHER FREQUENCY:N/A;?
     Route: 048

REACTIONS (5)
  - Cardiac failure [None]
  - Paranoia [None]
  - Mania [None]
  - Prescription drug used without a prescription [None]
  - Drug diversion [None]

NARRATIVE: CASE EVENT DATE: 20210628
